FAERS Safety Report 8889408 (Version 1)
Quarter: 2012Q4

REPORT INFORMATION
  Report Type: Spontaneous
  Country: US (occurrence: None)
  Receive Date: 20120918
  Receipt Date: 20120918
  Transmission Date: 20130627
  Serious: Yes (Hospitalization)
  Sender: FDA-Public Use
  Company Number: RB-18466-2010

PATIENT
  Sex: Female

DRUGS (5)
  1. SUBOXONE [Suspect]
     Indication: DRUG DEPENDENCE
     Route: 060
     Dates: start: 20101014, end: 20101104
  2. SUBOXONE [Suspect]
     Indication: DRUG DEPENDENCE
     Dosage: dosing details unknown
     Route: 060
     Dates: start: 20101218
  3. SUBOXONE [Suspect]
     Indication: DRUG DEPENDENCE
     Route: 060
     Dates: start: 20091005, end: 20100427
  4. SUBOXONE [Suspect]
     Indication: DRUG DEPENDENCE
     Route: 060
     Dates: start: 20100428, end: 20101013
  5. SUBOXONE [Suspect]
     Indication: DRUG DEPENDENCE
     Dosage: dosing details unknown
     Route: 060
     Dates: start: 20101105, end: 20101217

REACTIONS (5)
  - Glossodynia [None]
  - Swollen tongue [None]
  - Stomatitis [None]
  - Sepsis [None]
  - Kidney infection [None]
